FAERS Safety Report 5255492-5 (Version None)
Quarter: 2007Q1

REPORT INFORMATION
  Report Type: 
  Country: None (occurrence: None)
  Receive Date: 20070305
  Receipt Date: 20070221
  Transmission Date: 20070707
  Serious: Yes (Other)
  Sender: FDA-Public Use
  Company Number: US-ROCHE-483715

PATIENT
  Sex: Female

DRUGS (3)
  1. BONIVA [Suspect]
     Indication: OSTEOPOROSIS PROPHYLAXIS
     Dosage: SHE HAS BEEN TAKING BONIVA FOR ABOUT 2 YEARS.
     Route: 065
     Dates: start: 20050215
  2. IBUPROFEN [Concomitant]
     Indication: RELAXATION THERAPY
     Dosage: SHE TAKES 2 TABLETS EVERY NIGHT.
  3. DETROL [Concomitant]
     Indication: URINARY INCONTINENCE
     Dates: start: 20060215

REACTIONS (3)
  - BARRETT'S OESOPHAGUS [None]
  - DYSPEPSIA [None]
  - URINARY INCONTINENCE [None]
